FAERS Safety Report 9548625 (Version 2)
Quarter: 2013Q3

REPORT INFORMATION
  Report Type: Spontaneous
  Country: US (occurrence: None)
  Receive Date: 20130627
  Receipt Date: 20130930
  Transmission Date: 20140515
  Serious: No
  Sender: FDA-Public Use
  Company Number: 1000043422

PATIENT
  Age: 70 Year
  Sex: Male

DRUGS (6)
  1. LINZESS (LINACLOTIDE) (145 MICROGRAM, CAPSULES) [Suspect]
     Indication: CONSTIPATION
     Route: 048
     Dates: start: 201303, end: 201303
  2. LINZESS (LINACLOTIDE) (145 MICROGRAM, CAPSULES) [Concomitant]
     Indication: CONSTIPATION
     Route: 048
     Dates: start: 20130313, end: 2013
  3. LINZESS (LINACLOTIDE) (145 MICROGRAM, CAPSULES) [Suspect]
     Indication: CONSTIPATION
     Route: 048
     Dates: start: 20130605
  4. BISACODYL (BISACODYL) (BISACODYL) [Concomitant]
  5. LORAZEPAM (LORAZEPAM) (LORAZEPAM) [Concomitant]
  6. BENICAR (OLMESARTAN MEDOXOMIL) (OLMESARTAN MEDOXOMIL) [Concomitant]

REACTIONS (6)
  - Diarrhoea [None]
  - Flatulence [None]
  - Proctalgia [None]
  - Abdominal pain upper [None]
  - Eructation [None]
  - Unevaluable event [None]
